FAERS Safety Report 24978536 (Version 1)
Quarter: 2025Q1

REPORT INFORMATION
  Report Type: Spontaneous
  Country: UG (occurrence: UG)
  Receive Date: 20250218
  Receipt Date: 20250218
  Transmission Date: 20250408
  Serious: Yes (Hospitalization, Other)
  Sender: UNICHEM
  Company Number: UG-UNICHEM LABORATORIES LIMITED-UNI-2025-UG-001249

PATIENT

DRUGS (7)
  1. METRONIDAZOLE [Suspect]
     Active Substance: METRONIDAZOLE
     Indication: Necrotising fasciitis
     Route: 042
  2. CEFTRIAXONE [Suspect]
     Active Substance: CEFTRIAXONE
     Indication: Necrotising fasciitis
     Route: 065
  3. GENTAMICIN [Suspect]
     Active Substance: GENTAMICIN
     Indication: Necrotising fasciitis
     Route: 065
  4. CIPROFLOXACIN [Suspect]
     Active Substance: CIPROFLOXACIN
     Indication: Necrotising fasciitis
     Route: 042
  5. AMIKACIN [Suspect]
     Active Substance: AMIKACIN
     Indication: Necrotising fasciitis
     Route: 042
  6. DEXAMETHASONE [Suspect]
     Active Substance: DEXAMETHASONE
     Indication: Necrotising fasciitis
     Route: 042
  7. ACETAMINOPHEN [Concomitant]
     Active Substance: ACETAMINOPHEN
     Indication: Pain management
     Route: 042

REACTIONS (2)
  - Necrotising fasciitis [Unknown]
  - Condition aggravated [Unknown]
